FAERS Safety Report 5885339-5 (Version None)
Quarter: 2008Q3

REPORT INFORMATION
  Report Type: 
  Country: None (occurrence: None)
  Receive Date: 20080916
  Receipt Date: 20080904
  Transmission Date: 20090109
  Serious: Yes (Other)
  Sender: FDA-Public Use
  Company Number: JP-PFIZER INC-2008074850

PATIENT

DRUGS (7)
  1. ALDACTONE [Suspect]
  2. ALDACTONE [Suspect]
  3. LASIX [Suspect]
  4. LASIX [Suspect]
  5. ANTIPSYCHOTICS [Suspect]
  6. ANTIPSYCHOTICS [Suspect]
  7. DIGOXIN [Concomitant]

REACTIONS (1)
  - APATHY [None]
